FAERS Safety Report 25157788 (Version 5)
Quarter: 2025Q2

REPORT INFORMATION
  Report Type: Spontaneous
  Country: US (occurrence: US)
  Receive Date: 20250403
  Receipt Date: 20250520
  Transmission Date: 20250716
  Serious: No
  Sender: SANDOZ
  Company Number: US-SANDOZ-SDZ2025US018952

PATIENT
  Age: 51 Year
  Sex: Female
  Weight: 45.351 kg

DRUGS (3)
  1. COMBIPATCH [Suspect]
     Active Substance: ESTRADIOL\NORETHINDRONE ACETATE
     Indication: Menopause
     Route: 062
  2. HERBALS\TURMERIC [Concomitant]
     Active Substance: HERBALS\TURMERIC
     Indication: Product used for unknown indication
     Route: 065
  3. VITAMIN D [Concomitant]
     Active Substance: VITAMIN D NOS
     Indication: Product used for unknown indication
     Route: 065

REACTIONS (13)
  - Application site scab [Recovering/Resolving]
  - Application site exfoliation [Recovering/Resolving]
  - Application site inflammation [Recovering/Resolving]
  - Application site pain [Recovered/Resolved]
  - Application site pruritus [Recovered/Resolved]
  - Application site erythema [Recovering/Resolving]
  - Application site hypersensitivity [Recovering/Resolving]
  - Application site discolouration [Recovering/Resolving]
  - Application site irritation [Recovering/Resolving]
  - Insomnia [Unknown]
  - Sleep disorder [Unknown]
  - Pain [Unknown]
  - Device issue [Recovered/Resolved]

NARRATIVE: CASE EVENT DATE: 20250301
